FAERS Safety Report 18745896 (Version 1)
Quarter: 2021Q1

REPORT INFORMATION
  Report Type: Spontaneous
  Country: US (occurrence: US)
  Receive Date: 20210115
  Receipt Date: 20210115
  Transmission Date: 20210419
  Serious: Yes (Hospitalization)
  Sender: FDA-Public Use
  Company Number: US-SA-2021SA010326

PATIENT
  Sex: Male

DRUGS (1)
  1. DUPIXENT [Suspect]
     Active Substance: DUPILUMAB
     Dosage: UNK

REACTIONS (7)
  - Drug ineffective [Unknown]
  - Hospitalisation [Unknown]
  - Eczema [Recovered/Resolved]
  - Dyspnoea [Unknown]
  - Surgery [Unknown]
  - Product use issue [Unknown]
  - Oesophagitis [Unknown]

NARRATIVE: CASE EVENT DATE: 202008
